FAERS Safety Report 25420303 (Version 2)
Quarter: 2025Q3

REPORT INFORMATION
  Report Type: Report from Study
  Country: BR (occurrence: BR)
  Receive Date: 20250610
  Receipt Date: 20250709
  Transmission Date: 20251020
  Serious: Yes (Other)
  Sender: ABBVIE
  Company Number: BR-JNJFOC-20250602855

PATIENT
  Age: 79 Year
  Sex: Male
  Weight: 63 kg

DRUGS (1)
  1. IMBRUVICA [Suspect]
     Active Substance: IBRUTINIB
     Indication: Chronic lymphocytic leukaemia
     Route: 048
     Dates: end: 202504

REACTIONS (7)
  - Arrhythmia [Unknown]
  - Autonomic nervous system imbalance [Unknown]
  - Blood pressure fluctuation [Unknown]
  - Loss of consciousness [Unknown]
  - Emotional disorder [Unknown]
  - Cardiac disorder [Unknown]
  - Asthenia [Unknown]
